FAERS Safety Report 10543848 (Version 7)
Quarter: 2020Q3

REPORT INFORMATION
  Report Type: Report from Study
  Country: JP (occurrence: JP)
  Receive Date: 20141027
  Receipt Date: 20200901
  Transmission Date: 20201102
  Serious: Yes (Hospitalization, Other)
  Sender: FDA-Public Use
  Company Number: JP-INCYTE CORPORATION-2014IN002927

PATIENT

DRUGS (5)
  1. EXJADE [Concomitant]
     Active Substance: DEFERASIROX
     Indication: MYELOFIBROSIS
     Dosage: 500 MG, UNK
     Route: 048
  2. IRRADIATED RED BLOOD CELLS?LEUKOCYTES REDUCED [Concomitant]
     Active Substance: HUMAN RED BLOOD CELL
     Indication: MYELOFIBROSIS
     Dosage: 4 IU, UNK
     Route: 065
  3. JAKAVI [Suspect]
     Active Substance: RUXOLITINIB
     Indication: MYELOFIBROSIS
     Dosage: 15 MG, BID
     Route: 048
     Dates: start: 20140916, end: 20141208
  4. JAKAVI [Suspect]
     Active Substance: RUXOLITINIB
     Dosage: 5 MG, BID
     Route: 048
     Dates: start: 20141209, end: 20141219
  5. PREDONINE [Concomitant]
     Active Substance: PREDNISOLONE
     Indication: MYELOFIBROSIS
     Dosage: 8 MG, UNK
     Route: 048

REACTIONS (7)
  - Hepatic function abnormal [Recovered/Resolved]
  - Headache [Recovered/Resolved]
  - Thrombocytopenia [Not Recovered/Not Resolved]
  - Diverticulitis [Recovering/Resolving]
  - Haemoglobin decreased [Unknown]
  - Blood pressure increased [Recovered/Resolved]
  - Myelofibrosis [Unknown]

NARRATIVE: CASE EVENT DATE: 20140922
